FAERS Safety Report 23298636 (Version 1)
Quarter: 2023Q4

REPORT INFORMATION
  Report Type: Report from Study
  Country: AR (occurrence: AR)
  Receive Date: 20231214
  Receipt Date: 20231214
  Transmission Date: 20240109
  Serious: Yes (Other)
  Sender: FDA-Public Use
  Company Number: AR-ABBVIE-5400408

PATIENT
  Sex: Female

DRUGS (1)
  1. RINVOQ [Suspect]
     Active Substance: UPADACITINIB
     Indication: Rheumatoid arthritis
     Dosage: FORM STRENGTH: 15MG
     Route: 048
     Dates: start: 20220214, end: 20231025

REACTIONS (6)
  - Spinal fracture [Recovering/Resolving]
  - Fall [Unknown]
  - Neuralgia [Unknown]
  - Back pain [Unknown]
  - Nerve injury [Unknown]
  - Back injury [Unknown]

NARRATIVE: CASE EVENT DATE: 20230101
